FAERS Safety Report 23873751 (Version 3)
Quarter: 2025Q3

REPORT INFORMATION
  Report Type: Spontaneous
  Country: MX (occurrence: MX)
  Receive Date: 20240520
  Receipt Date: 20250708
  Transmission Date: 20251021
  Serious: Yes (Hospitalization, Other)
  Sender: CSL BEHRING
  Company Number: MX-BEH-2024172480

PATIENT
  Age: 1 Year
  Sex: Male
  Weight: 9.5 kg

DRUGS (6)
  1. HUMAN IMMUNOGLOBULIN G [Suspect]
     Active Substance: HUMAN IMMUNOGLOBULIN G
     Indication: Immune thrombocytopenia
     Route: 042
     Dates: start: 20240505, end: 20240505
  2. HUMAN IMMUNOGLOBULIN G [Suspect]
     Active Substance: HUMAN IMMUNOGLOBULIN G
     Route: 042
     Dates: start: 20240506, end: 20240506
  3. METHYLPREDNISOLONE [Concomitant]
     Active Substance: METHYLPREDNISOLONE
     Route: 042
     Dates: start: 20240505
  4. METHYLPREDNISOLONE [Concomitant]
     Active Substance: METHYLPREDNISOLONE
     Route: 042
  5. OMEPRAZOLE [Concomitant]
     Active Substance: OMEPRAZOLE
     Dosage: 10 MG, QD
     Route: 042
  6. SUCRALFATE [Concomitant]
     Active Substance: SUCRALFATE
     Dosage: 500 MG, BID
     Dates: end: 20240507

REACTIONS (4)
  - Haemorrhage [Unknown]
  - Suspected counterfeit product [Unknown]
  - Product with quality issue administered [Unknown]
  - Off label use [Unknown]
